FAERS Safety Report 25888828 (Version 1)
Quarter: 2025Q4

REPORT INFORMATION
  Report Type: Spontaneous
  Country: US (occurrence: US)
  Receive Date: 20251007
  Receipt Date: 20251007
  Transmission Date: 20260117
  Serious: No
  Sender: TAKEDA
  Company Number: US-TAKEDA-ALL1-2012-05503

PATIENT
  Sex: Female

DRUGS (4)
  1. LIALDA [Suspect]
     Active Substance: MESALAMINE
     Indication: Colitis microscopic
     Dosage: 4.8 GRAM, QD
  2. LIALDA [Suspect]
     Active Substance: MESALAMINE
     Dosage: 3.6 GRAM, QD
  3. LIALDA [Suspect]
     Active Substance: MESALAMINE
     Dosage: 2.4 GRAM, QD
  4. LIALDA [Suspect]
     Active Substance: MESALAMINE
     Dosage: UNK

REACTIONS (2)
  - Drug ineffective for unapproved indication [Not Recovered/Not Resolved]
  - Diarrhoea [Not Recovered/Not Resolved]
